FAERS Safety Report 12089182 (Version 1)
Quarter: 2016Q1

REPORT INFORMATION
  Report Type: Spontaneous
  Country: US (occurrence: None)
  Receive Date: 20160217
  Receipt Date: 20160217
  Transmission Date: 20160526
  Serious: Yes (Disabling)
  Sender: FDA-Public Use
  Company Number: None

PATIENT
  Age: 51 Year
  Sex: Male
  Weight: 81.65 kg

DRUGS (2)
  1. SAL DE UVAS PICOT [Suspect]
     Active Substance: CITRIC ACID MONOHYDRATE\SODIUM BICARBONATE
     Indication: DYSPEPSIA
     Route: 048
     Dates: start: 20160212, end: 20160212
  2. LIBRAX [Concomitant]
     Active Substance: CHLORDIAZEPOXIDE HYDROCHLORIDE\CLIDINIUM BROMIDE

REACTIONS (9)
  - Arthralgia [None]
  - Hyperhidrosis [None]
  - Peripheral swelling [None]
  - Decreased appetite [None]
  - Pruritus [None]
  - Oral pain [None]
  - Headache [None]
  - Myalgia [None]
  - Abdominal discomfort [None]

NARRATIVE: CASE EVENT DATE: 20160212
